FAERS Safety Report 17847204 (Version 1)
Quarter: 2020Q2

REPORT INFORMATION
  Report Type: Spontaneous
  Country: BR (occurrence: MX)
  Receive Date: 20200601
  Receipt Date: 20200601
  Transmission Date: 20200714
  Serious: Yes (Other)
  Sender: FDA-Public Use
  Company Number: MX-BIOMARINAP-MX-2020-130395

PATIENT
  Age: 10 Year
  Sex: Female
  Weight: 22.6 kg

DRUGS (1)
  1. NAGLAZYME [Suspect]
     Active Substance: GALSULFASE
     Indication: MUCOPOLYSACCHARIDOSIS VI
     Dosage: UNK
     Route: 065
     Dates: start: 20121113

REACTIONS (3)
  - Otorhinolaryngological surgery [Unknown]
  - Carpal tunnel syndrome [Unknown]
  - Mobility decreased [Unknown]
